FAERS Safety Report 5455939-5 (Version None)
Quarter: 2007Q3

REPORT INFORMATION
  Report Type: 
  Country: None (occurrence: None)
  Receive Date: 20070914
  Receipt Date: 20070914
  Transmission Date: 20080115
  Serious: Yes (Other)
  Sender: FDA-Public Use
  Company Number: None

PATIENT
  Age: 66 Year
  Sex: Female
  Weight: 65.9 kg

DRUGS (6)
  1. BYETTA [Suspect]
     Dosage: 5MCG BID SQ
     Route: 058
     Dates: start: 20070208, end: 20070208
  2. NABUMETONE [Concomitant]
  3. DIOVAN [Concomitant]
  4. TRICOR [Concomitant]
  5. VYTORIN [Concomitant]
  6. GLIMEPIRIDE [Concomitant]

REACTIONS (7)
  - ANXIETY [None]
  - BLOOD GLUCOSE DECREASED [None]
  - FALL [None]
  - HYPERHIDROSIS [None]
  - MALAISE [None]
  - PALPITATIONS [None]
  - TREMOR [None]
